FAERS Safety Report 20862913 (Version 1)
Quarter: 2022Q2

REPORT INFORMATION
  Report Type: Spontaneous
  Country: NL (occurrence: NL)
  Receive Date: 20220523
  Receipt Date: 20220523
  Transmission Date: 20220720
  Serious: Yes (Other)
  Sender: FDA-Public Use
  Company Number: None

PATIENT
  Age: 42 Year
  Sex: Female
  Weight: 65 kg

DRUGS (4)
  1. DYMISTA [Suspect]
     Active Substance: AZELASTINE HYDROCHLORIDE\FLUTICASONE PROPIONATE
     Indication: Rhinitis
     Dosage: 1 DOSAGE FORM, BID (2 X PER DAY 1 SPRAY IN BOTH N)OSTRILS
     Dates: start: 20211008, end: 20220425
  2. PANTOPRAZOLE SODIUM [Concomitant]
     Active Substance: PANTOPRAZOLE SODIUM
     Dosage: 40 MILLIGRAM (GASTRO-RESISTANT TABLET, 40 MG (MILLIGRAMS))
  3. MEBEVERINE [Concomitant]
     Active Substance: MEBEVERINE
     Dosage: 200 MILLIGRAM (REGULATED RELEASE CAPSULE, 200 MG (MILLIGRAMS))
  4. DESLORATADINE [Concomitant]
     Active Substance: DESLORATADINE
     Dosage: 5 MILLIGRAM (MELTING TABLET, 5 MG (MILLIGRAM))

REACTIONS (9)
  - Syncope [Recovering/Resolving]
  - Dyspnoea [Recovering/Resolving]
  - Listless [Recovering/Resolving]
  - Palpitations [Recovering/Resolving]
  - Chills [Recovering/Resolving]
  - Anxiety [Recovering/Resolving]
  - Paraesthesia [Recovering/Resolving]
  - Dizziness [Recovering/Resolving]
  - Asthenia [Recovering/Resolving]

NARRATIVE: CASE EVENT DATE: 20220404
